FAERS Safety Report 10509964 (Version 1)
Quarter: 2014Q4

REPORT INFORMATION
  Report Type: Spontaneous
  Country: US (occurrence: None)
  Receive Date: 20141009
  Receipt Date: 20141009
  Transmission Date: 20150528
  Serious: Yes (Death, Hospitalization)
  Sender: FDA-Public Use
  Company Number: None

PATIENT
  Age: 69 Year
  Sex: Male
  Weight: 91.6 kg

DRUGS (21)
  1. DILTIAZEM [Concomitant]
     Active Substance: DILTIAZEM
  2. OXYDONE [Concomitant]
  3. POTASSIUM CHLORIDE. [Concomitant]
     Active Substance: POTASSIUM CHLORIDE
  4. ALBUTEROL. [Concomitant]
     Active Substance: ALBUTEROL
  5. LEVOPHED [Concomitant]
     Active Substance: NOREPINEPHRINE BITARTRATE
  6. MORPHINE [Concomitant]
     Active Substance: MORPHINE
  7. FENTANYL. [Concomitant]
     Active Substance: FENTANYL
  8. MAGNESIUM SULFATE. [Concomitant]
     Active Substance: MAGNESIUM SULFATE
  9. HEPARIN [Concomitant]
     Active Substance: HEPARIN SODIUM
  10. PROPOFOL. [Concomitant]
     Active Substance: PROPOFOL
  11. ATROPINE [Concomitant]
     Active Substance: ATROPINE
  12. SODIUM PHOSPHATE [Concomitant]
     Active Substance: SODIUM PHOSPHATE
  13. CYTARABINE. [Suspect]
     Active Substance: CYTARABINE
     Dates: end: 20120219
  14. ACETAMINOPHEN. [Concomitant]
     Active Substance: ACETAMINOPHEN
  15. ACYCLOVIR. [Concomitant]
     Active Substance: ACYCLOVIR
  16. PROTONIX [Concomitant]
     Active Substance: PANTOPRAZOLE SODIUM
  17. DAUNORUBICIN [Suspect]
     Active Substance: DAUNORUBICIN
     Dates: end: 20120215
  18. CALCIUM GLUCONATE. [Concomitant]
     Active Substance: CALCIUM GLUCONATE
  19. CEFEPIME [Concomitant]
     Active Substance: CEFEPIME\CEFEPIME HYDROCHLORIDE
  20. MICAFUNGIN SODIUM [Concomitant]
     Active Substance: MICAFUNGIN SODIUM
  21. ZOFRAN [Concomitant]
     Active Substance: ONDANSETRON HYDROCHLORIDE

REACTIONS (1)
  - Leukaemia [None]

NARRATIVE: CASE EVENT DATE: 20120308
